FAERS Safety Report 21487754 (Version 1)
Quarter: 2022Q4

REPORT INFORMATION
  Report Type: Report from Study
  Country: US (occurrence: US)
  Receive Date: 20221020
  Receipt Date: 20221020
  Transmission Date: 20230113
  Serious: Yes (Hospitalization)
  Sender: FDA-Public Use
  Company Number: US-BoehringerIngelheim-2022-BI-198011

PATIENT
  Age: 61 Year
  Sex: Male

DRUGS (3)
  1. OFEV [Suspect]
     Active Substance: NINTEDANIB
     Indication: Idiopathic pulmonary fibrosis
     Route: 048
     Dates: start: 20181213
  2. OFEV [Suspect]
     Active Substance: NINTEDANIB
  3. OFEV [Suspect]
     Active Substance: NINTEDANIB

REACTIONS (21)
  - Blood glucose decreased [Unknown]
  - Dehydration [Unknown]
  - Haemoglobin decreased [Unknown]
  - Dyspnoea [Unknown]
  - Coronary arterial stent insertion [Recovered/Resolved]
  - Syncope [Recovered/Resolved]
  - Oropharyngeal pain [Unknown]
  - Arthritis [Unknown]
  - Headache [Recovered/Resolved]
  - Diarrhoea [Unknown]
  - Staphylococcal infection [Recovered/Resolved]
  - Pain [Unknown]
  - Insomnia [Unknown]
  - Weight increased [Unknown]
  - Nausea [Recovered/Resolved]
  - Fall [Unknown]
  - Cough [Unknown]
  - Wheezing [Unknown]
  - Hypoxia [Recovered/Resolved]
  - Intervertebral disc protrusion [Recovered/Resolved]
  - Swelling [Unknown]

NARRATIVE: CASE EVENT DATE: 20210501
